FAERS Safety Report 11848690 (Version 1)
Quarter: 2015Q4

REPORT INFORMATION
  Report Type: Report from Study
  Country: CL (occurrence: CL)
  Receive Date: 20151218
  Receipt Date: 20151218
  Transmission Date: 20160305
  Serious: Yes (Other)
  Sender: FDA-Public Use
  Company Number: CL-ROCHE-1678635

PATIENT
  Age: 44 Year
  Sex: Female
  Weight: 68 kg

DRUGS (1)
  1. XELODA [Suspect]
     Active Substance: CAPECITABINE
     Indication: COLORECTAL CANCER
     Dosage: 14 DAYS PER CYCLE
     Route: 048
     Dates: start: 20150413, end: 20151027

REACTIONS (3)
  - Influenza [Recovered/Resolved]
  - Liver injury [Not Recovered/Not Resolved]
  - Tracheal diverticulum [Not Recovered/Not Resolved]

NARRATIVE: CASE EVENT DATE: 201510
